FAERS Safety Report 20231260 (Version 1)
Quarter: 2021Q4

REPORT INFORMATION
  Report Type: Spontaneous
  Country: DE (occurrence: DE)
  Receive Date: 20211227
  Receipt Date: 20211227
  Transmission Date: 20220303
  Serious: Yes (Other)
  Sender: FDA-Public Use
  Company Number: DE-JNJFOC-20211207565

PATIENT
  Age: 6 Decade
  Sex: Male

DRUGS (6)
  1. ERLEADA [Suspect]
     Active Substance: APALUTAMIDE
     Indication: Prostate cancer
     Route: 048
     Dates: start: 20211006, end: 20211108
  2. FIRMAGON [Concomitant]
     Active Substance: DEGARELIX ACETATE
     Indication: Prostate cancer metastatic
     Dosage: 80MG*1 MONTHLY
     Route: 065
     Dates: start: 20210903
  3. ASPIRIN [Concomitant]
     Active Substance: ASPIRIN
     Indication: Acute myocardial infarction
     Dosage: 100 MG 1 *1
     Route: 065
  4. RAMIPRIL [Concomitant]
     Active Substance: RAMIPRIL
     Indication: Product used for unknown indication
     Dosage: 2.5 1*!
     Route: 065
  5. METOPROLOL [Concomitant]
     Active Substance: METOPROLOL
     Indication: Product used for unknown indication
     Dosage: 47.5 1 *1
     Route: 065
  6. ROSUVASTATIN [Concomitant]
     Active Substance: ROSUVASTATIN
     Indication: Hypercholesterolaemia
     Dosage: 5 1*1
     Route: 065

REACTIONS (4)
  - Arrhythmia [Recovered/Resolved]
  - Hyperhidrosis [Not Recovered/Not Resolved]
  - Hypertension [Recovered/Resolved]
  - Panic attack [Recovered/Resolved]

NARRATIVE: CASE EVENT DATE: 20211007
